FAERS Safety Report 16123968 (Version 1)
Quarter: 2019Q1

REPORT INFORMATION
  Report Type: Spontaneous
  Country: US (occurrence: US)
  Receive Date: 20190327
  Receipt Date: 20190327
  Transmission Date: 20190418
  Serious: Yes (Hospitalization, Other)
  Sender: FDA-Public Use
  Company Number: US-009507513-1903USA011387

PATIENT
  Sex: Female

DRUGS (1)
  1. NUVARING [Suspect]
     Active Substance: ETHINYL ESTRADIOL\ETONOGESTREL
     Indication: CONTRACEPTION
     Dosage: 1 DOSAGE FORM, EVERY 28 DAYS
     Route: 067
     Dates: end: 201802

REACTIONS (3)
  - Seizure [Recovered/Resolved]
  - Drug hypersensitivity [Unknown]
  - Intracranial venous sinus thrombosis [Unknown]

NARRATIVE: CASE EVENT DATE: 2018
